FAERS Safety Report 8995853 (Version 4)
Quarter: 2013Q3

REPORT INFORMATION
  Report Type: Spontaneous
  Country: US (occurrence: US)
  Receive Date: 20130103
  Receipt Date: 20130702
  Transmission Date: 20140515
  Serious: Yes (Hospitalization, Other)
  Sender: FDA-Public Use
  Company Number: US-009507513-1202USA03884

PATIENT
  Sex: Female
  Weight: 61.68 kg

DRUGS (11)
  1. FOSAMAX [Suspect]
     Indication: OSTEOPOROSIS
     Dosage: 70 MG, QW
     Route: 048
     Dates: start: 200102
  2. FOSAMAX [Suspect]
     Indication: OSTEOPENIA
  3. BONIVA [Suspect]
     Indication: OSTEOPOROSIS
     Dosage: 150 MG, QM
     Dates: end: 201001
  4. BONIVA [Suspect]
     Indication: OSTEOPENIA
  5. CALCIUM (UNSPECIFIED) [Concomitant]
     Indication: ROUTINE HEALTH MAINTENANCE
     Dosage: 600 MG, TID
     Route: 048
     Dates: start: 2000
  6. CYANOCOBALAMIN [Concomitant]
     Indication: ROUTINE HEALTH MAINTENANCE
     Dosage: 1000 MICROGRAM, QM
     Route: 058
     Dates: start: 1997
  7. CYANOCOBALAMIN [Concomitant]
     Indication: VITAMIN B12 DEFICIENCY
  8. CLARITIN [Concomitant]
     Indication: HYPERSENSITIVITY
  9. BENADRYL [Concomitant]
     Indication: HYPERSENSITIVITY
     Dosage: UNK, HS
  10. ASTELIN (DYPHYLLINE) [Concomitant]
     Indication: HYPERSENSITIVITY
  11. LORATADINE [Concomitant]
     Indication: HYPERSENSITIVITY
     Dosage: 10 MG, QD

REACTIONS (29)
  - Femur fracture [Unknown]
  - Femur fracture [Unknown]
  - Intramedullary rod insertion [Unknown]
  - Medical device implantation [Unknown]
  - Radius fracture [Unknown]
  - Closed fracture manipulation [Unknown]
  - Ulna fracture [Unknown]
  - Hip arthroplasty [Unknown]
  - Transfusion [Unknown]
  - Humerus fracture [Unknown]
  - Fall [Unknown]
  - Hypercholesterolaemia [Unknown]
  - Low turnover osteopathy [Unknown]
  - Pernicious anaemia [Unknown]
  - Vitamin D deficiency [Unknown]
  - Liver function test abnormal [Unknown]
  - Weight increased [Unknown]
  - Haemorrhoids [Unknown]
  - Blood pressure increased [Unknown]
  - Fall [Unknown]
  - Arthritis [Unknown]
  - Anaemia [Unknown]
  - Autonomic neuropathy [Unknown]
  - Oesophageal discomfort [Unknown]
  - Bone pain [Not Recovered/Not Resolved]
  - Back pain [Unknown]
  - Drug ineffective [Unknown]
  - Urticaria [Unknown]
  - Constipation [Unknown]
